FAERS Safety Report 5233216-5 (Version None)
Quarter: 2007Q1

REPORT INFORMATION
  Report Type: 
  Country: None (occurrence: None)
  Receive Date: 20061204
  Receipt Date: 20060926
  Transmission Date: 20070707
  Serious: No
  Sender: FDA-Public Use
  Company Number: 2006-BP-03762BP

PATIENT
  Sex: Male

DRUGS (18)
  1. SPIRIVA [Suspect]
     Indication: CHRONIC OBSTRUCTIVE PULMONARY DISEASE
     Dosage: 18 MCG (18 MCG,1 IN 1 D),IH
     Route: 055
     Dates: start: 20040101
  2. SPIRIVA [Suspect]
     Indication: EMPHYSEMA
     Dosage: 18 MCG (18 MCG,1 IN 1 D),IH
     Route: 055
     Dates: start: 20040101
  3. ZETIA [Concomitant]
  4. B12 RESIN (ALL OTHER THERAPEUTIC PRODUCTS) [Concomitant]
  5. ASPIRIN [Concomitant]
  6. CITALOPRAM HYDROBROMIDE [Concomitant]
  7. CITALOPRAM HBR (CITALOPRAM) [Concomitant]
  8. CO Q10 (ALL OTHER THERAPEUTIC PRODUCTS) [Concomitant]
  9. COZAAR [Concomitant]
  10. DARVOCET [Concomitant]
  11. FLOMAX (MORNIFLUMATE) [Concomitant]
  12. GUAIFENESIN [Concomitant]
  13. NTG (GLYCERYL TRINITRATE) [Concomitant]
  14. RANITIDINE [Concomitant]
  15. THEOPHYLLINE [Concomitant]
  16. TIAZAC HCL ER (ALL OTHER THERAPEUTIC PRODUCTS) [Concomitant]
  17. TYLENOL [Concomitant]
  18. CLOPIDOGREL BISULFATE (ALL OTHER THERAPEUTIC PRODUCTS) [Concomitant]

REACTIONS (1)
  - WHEEZING [None]
